FAERS Safety Report 8876687 (Version 1)
Quarter: 2012Q4

REPORT INFORMATION
  Report Type: 
  Country: US (occurrence: US)
  Receive Date: 20121023
  Receipt Date: 20121023
  Transmission Date: 20130627
  Serious: No
  Sender: FDA-Public Use
  Company Number: US-AMGEN-USASP2011061276

PATIENT
  Sex: Female

DRUGS (16)
  1. ENBREL [Suspect]
     Indication: PRODUCT USED FOR UNKNOWN INDICATION
     Dosage: 50 mg, qwk
     Route: 058
  2. RESTASIS [Concomitant]
     Dosage: 0.05 UNK, UNK
  3. PAXIL [Concomitant]
  4. LIPITOR [Concomitant]
  5. LYRICA [Concomitant]
  6. TRAZODONE [Concomitant]
  7. ATENOLOL [Concomitant]
  8. LISINOPRIL [Concomitant]
  9. HYDROCHLOROTHIAZIDE [Concomitant]
  10. NEXIUM                             /01479302/ [Concomitant]
  11. ASPIRIN [Concomitant]
  12. MULTIVITAMIN                       /00097801/ [Concomitant]
  13. ADVIL                              /00044201/ [Concomitant]
  14. SOOTHE XP [Concomitant]
  15. FISH OIL [Concomitant]
  16. HYDROCORTISONE [Concomitant]

REACTIONS (3)
  - Pain in extremity [Unknown]
  - Asthenia [Unknown]
  - Fatigue [Unknown]
